FAERS Safety Report 13072598 (Version 2)
Quarter: 2018Q1

REPORT INFORMATION
  Report Type: Spontaneous
  Country: US (occurrence: US)
  Receive Date: 20161229
  Receipt Date: 20180115
  Transmission Date: 20180508
  Serious: Yes (Other)
  Sender: FDA-Public Use
  Company Number: US-SA-2016SA173685

PATIENT
  Age: 51 Year
  Sex: Female

DRUGS (19)
  1. TAXOTERE [Suspect]
     Active Substance: DOCETAXEL
     Indication: BREAST CANCER FEMALE
     Dosage: 132 MG IN 250 MI NORMAL SALINE
     Route: 051
     Dates: start: 20140903, end: 20140903
  2. POTASSIUM CHLORIDE. [Concomitant]
     Active Substance: POTASSIUM CHLORIDE
  3. TAXOTERE [Suspect]
     Active Substance: DOCETAXEL
     Indication: BREAST CANCER FEMALE
     Dosage: 132 MG IN 250 MI NORMAL SALINE
     Route: 051
     Dates: start: 20140611, end: 20140611
  4. HYDROCHLOROTHIAZIDE. [Concomitant]
     Active Substance: HYDROCHLOROTHIAZIDE
  5. FOLIC ACID. [Concomitant]
     Active Substance: FOLIC ACID
  6. TYLENOL [Concomitant]
     Active Substance: ACETAMINOPHEN
  7. SELENIUM SULFIDE. [Concomitant]
     Active Substance: SELENIUM SULFIDE
  8. GABAPENTIN. [Concomitant]
     Active Substance: GABAPENTIN
  9. TAXOTERE [Suspect]
     Active Substance: DOCETAXEL
     Indication: BREAST CANCER FEMALE
     Dosage: 132 MG IN 250 MI NORMAL SALINE
     Route: 051
     Dates: start: 20140924, end: 20140924
  10. VITAMIN D [Concomitant]
     Active Substance: CHOLECALCIFEROL
  11. CLONAZEPAM. [Concomitant]
     Active Substance: CLONAZEPAM
  12. PERTUZUMAB. [Concomitant]
     Active Substance: PERTUZUMAB
     Route: 065
  13. TRASTUZUMAB. [Concomitant]
     Active Substance: TRASTUZUMAB
     Dosage: 458 MG IN 250 MI NORMAL SALINE- INFUSE OVER 30 MIN
     Route: 065
  14. MOTRIN [Concomitant]
     Active Substance: IBUPROFEN
  15. HERCEPTIN [Concomitant]
     Active Substance: TRASTUZUMAB
  16. DIOVAN [Concomitant]
     Active Substance: VALSARTAN
  17. FLEXERIL [Concomitant]
     Active Substance: CYCLOBENZAPRINE HYDROCHLORIDE
  18. TIAZAC [Concomitant]
     Active Substance: DILTIAZEM HYDROCHLORIDE
  19. NEXIUM [Concomitant]
     Active Substance: ESOMEPRAZOLE MAGNESIUM

REACTIONS (4)
  - Emotional distress [Unknown]
  - Alopecia [Not Recovered/Not Resolved]
  - Pain [Unknown]
  - Anxiety [Unknown]

NARRATIVE: CASE EVENT DATE: 201504
